FAERS Safety Report 9433792 (Version 3)
Quarter: 2013Q3

REPORT INFORMATION
  Report Type: Report from Study
  Country: BR (occurrence: BR)
  Receive Date: 20130731
  Receipt Date: 20130808
  Transmission Date: 20140515
  Serious: Yes (Hospitalization, Other)
  Sender: FDA-Public Use
  Company Number: PHHY2013BR079065

PATIENT
  Age: 34 Year
  Sex: Female
  Weight: 40 kg

DRUGS (11)
  1. MYFORTIC [Suspect]
     Indication: RENAL TRANSPLANT
     Dosage: 360 MG, TID
     Route: 048
     Dates: start: 20071113
  2. MYFORTIC [Suspect]
     Dosage: 720 MG/ DAY
     Route: 048
  3. SIMULECT [Suspect]
     Indication: RENAL TRANSPLANT
     Dosage: 20 MG, DAY 1
     Route: 042
     Dates: start: 20071113
  4. SIMULECT [Suspect]
     Dosage: 20 MG, DAY 4
     Route: 042
     Dates: start: 20071116
  5. PREDNISONE [Suspect]
     Indication: RENAL TRANSPLANT
     Dosage: 40 MG, PER DAY
     Route: 048
     Dates: start: 20071114
  6. PREDNISONE [Suspect]
     Dosage: 5 MG, PER DAY
     Route: 048
     Dates: start: 20071114
  7. TACROLIMUS [Suspect]
     Indication: RENAL TRANSPLANT
     Dosage: 3 MG, BID
     Route: 048
     Dates: start: 20071113, end: 20071204
  8. SIROLIMUS [Suspect]
     Indication: DIABETES MELLITUS
     Dosage: 2 MG
     Route: 048
     Dates: start: 20071205, end: 20090423
  9. EVEROLIMUS [Concomitant]
     Indication: RENAL TRANSPLANT
     Dosage: 1 MG
     Dates: start: 20090423
  10. EVEROLIMUS [Concomitant]
     Dosage: 2 MG
  11. NPH INSULIN [Concomitant]
     Indication: DIABETES MELLITUS
     Dosage: 100 U/ML, UNK
     Route: 058
     Dates: start: 20071129

REACTIONS (10)
  - Diabetes mellitus inadequate control [Recovered/Resolved]
  - Peripheral vascular disorder [Recovered/Resolved]
  - Hypertriglyceridaemia [Recovering/Resolving]
  - Blood cholesterol increased [Recovering/Resolving]
  - Renal impairment [Unknown]
  - Blood creatinine increased [Recovering/Resolving]
  - Blood urea increased [Recovering/Resolving]
  - Creatinine renal clearance decreased [Unknown]
  - Kidney transplant rejection [Unknown]
  - Proteinuria [Recovering/Resolving]
